FAERS Safety Report 9877180 (Version 1)
Quarter: 2014Q1

REPORT INFORMATION
  Report Type: Spontaneous
  Country: US (occurrence: US)
  Receive Date: 20140206
  Receipt Date: 20140206
  Transmission Date: 20141002
  Serious: No
  Sender: FDA-Public Use
  Company Number: US-BAYER-2014-019102

PATIENT
  Age: 90 Year
  Sex: Female

DRUGS (1)
  1. ALEVE CAPLET [Suspect]
     Dosage: DF

REACTIONS (1)
  - Abdominal pain upper [None]
